FAERS Safety Report 7981308-X (Version None)
Quarter: 2011Q4

REPORT INFORMATION
  Report Type: 
  Country: None (occurrence: None)
  Receive Date: 20111213
  Receipt Date: 20111207
  Transmission Date: 20120403
  Serious: Yes (Death, Hospitalization)
  Sender: FDA-Public Use
  Company Number: AUR-APL-2011-06070

PATIENT
  Age: 73 Year
  Sex: Female
  Weight: 41.27 kg

DRUGS (3)
  1. CITALOPRAM (CITALOPRAM) [Suspect]
     Indication: PRODUCT USED FOR UNKNOWN INDICATION
     Dosage: (40 MG),
  2. OLANZAPINE [Concomitant]
  3. MIDAZOLAM HCL [Concomitant]

REACTIONS (4)
  - BEDRIDDEN [None]
  - CARDIAC ARREST [None]
  - HALLUCINATION [None]
  - GENERAL PHYSICAL HEALTH DETERIORATION [None]
